FAERS Safety Report 7668690-8 (Version None)
Quarter: 2011Q3

REPORT INFORMATION
  Report Type: 
  Country: None (occurrence: None)
  Receive Date: 20110808
  Receipt Date: 20110726
  Transmission Date: 20111222
  Serious: Yes (Hospitalization)
  Sender: FDA-Public Use
  Company Number: JP-AMGEN-JPNSP2011034409

PATIENT
  Age: 73 Year
  Sex: Female
  Weight: 69 kg

DRUGS (16)
  1. SELBEX [Concomitant]
     Indication: GASTRITIS
     Dosage: 50 MG, TID
     Route: 048
  2. NEUROTROPIN [Concomitant]
     Indication: PRURITUS
     Dosage: 1 DF, 3 TIMES/WK
     Route: 040
  3. ALOSENN [Concomitant]
     Indication: CONSTIPATION
     Dosage: 1 G, BID
     Route: 048
  4. OMEPRAZOLE [Concomitant]
     Indication: GASTROOESOPHAGEAL REFLUX DISEASE
     Dosage: 20 MG, QD
     Route: 048
  5. PROMAC [Concomitant]
     Indication: GASTRIC ULCER
     Dosage: 75 MG, BID
     Route: 048
  6. NEO-MINOPHAGEN C [Concomitant]
     Indication: PRURITUS
     Dosage: 20 ML, 3 TIMES/WK
     Route: 040
  7. SENNARIDE [Concomitant]
     Indication: CONSTIPATION
     Dosage: UNK UNK, QD
     Route: 048
  8. SEVELAMER HYDROCHLORIDE [Concomitant]
     Indication: HYPERPHOSPHATAEMIA
     Dosage: 800 MG, TID
     Route: 048
     Dates: start: 20110527
  9. THEO-DUR [Concomitant]
     Indication: ASTHMA
     Dosage: 100 MG, BID
     Route: 048
  10. MUCOSOLVAN [Concomitant]
     Indication: ASTHMA
     Dosage: 15 MG, TID
     Route: 048
  11. METHYCOBAL [Concomitant]
     Indication: NEUROPATHY PERIPHERAL
     Dosage: 0.5 MG, TID
     Route: 048
  12. CINACALCET HYDROCHLORIDE [Suspect]
     Indication: HYPERPARATHYROIDISM SECONDARY
     Route: 048
     Dates: start: 20110117, end: 20110617
  13. PLETAL [Concomitant]
     Indication: ARTERIAL OCCLUSIVE DISEASE
     Dosage: 50 MG, BID
     Route: 048
     Dates: start: 20110325
  14. ASPIRIN [Concomitant]
     Indication: ARTERIOSCLEROSIS OBLITERANS
     Dosage: 100 MG, QD
     Route: 048
  15. REMITCH [Concomitant]
     Indication: PRURITUS
     Dosage: 2.5 MG, QD
     Route: 048
     Dates: start: 20091228
  16. NESPO [Concomitant]
     Indication: NEPHROGENIC ANAEMIA
     Dosage: 60 A?G, QWK
     Route: 040
     Dates: start: 20110218

REACTIONS (2)
  - TORSADE DE POINTES [None]
  - ELECTROCARDIOGRAM QT PROLONGED [None]
